FAERS Safety Report 8922933 (Version 3)
Quarter: 2013Q3

REPORT INFORMATION
  Report Type: Spontaneous
  Country: US (occurrence: None)
  Receive Date: 20121115
  Receipt Date: 20130705
  Transmission Date: 20140515
  Serious: Yes (Other)
  Sender: FDA-Public Use
  Company Number: KAD201211-000487

PATIENT
  Age: 66 Year
  Sex: Female
  Weight: 30.39 kg

DRUGS (2)
  1. RIBASPHERE RIBAPAK (RIBAVIRIN) [Suspect]
     Dosage: (400 MG AM AND PM)
     Route: 048
     Dates: start: 20120903, end: 20121023
  2. PEGASYS (PEGINTERFERON ALFA-2A) [Suspect]
     Route: 058
     Dates: start: 20120903, end: 20121023

REACTIONS (8)
  - Infection [None]
  - Full blood count decreased [None]
  - Urinary tract infection [None]
  - Anaemia [None]
  - Nausea [None]
  - Chest pain [None]
  - Fatigue [None]
  - Weight decreased [None]
